FAERS Safety Report 9303126 (Version 2)
Quarter: 2013Q3

REPORT INFORMATION
  Report Type: Spontaneous
  Country: US (occurrence: US)
  Receive Date: 20130522
  Receipt Date: 20130819
  Transmission Date: 20140515
  Serious: Yes (Death, Hospitalization, Other)
  Sender: FDA-Public Use
  Company Number: PHEH2013US011205

PATIENT
  Sex: Male
  Weight: 92 kg

DRUGS (26)
  1. SANDOSTATIN LAR DEPOT [Suspect]
     Indication: METASTATIC CARCINOID TUMOUR
     Dosage: UNK
     Route: 030
  2. UNASYN [Concomitant]
     Dosage: UNK UKN, UNK
  3. VASOPRESSIN [Concomitant]
     Dosage: UNK UKN, UNK
  4. NOREPINEPHRINE [Concomitant]
     Dosage: 16 MG, UNK
     Route: 042
  5. DOPAMINE [Concomitant]
     Dosage: 400 MG, UNK
  6. DOPAMINE [Concomitant]
     Dosage: 250 ML, UNK
     Route: 042
     Dates: end: 20120604
  7. DILANTIN//PHENYTOIN [Concomitant]
     Dosage: UNK UKN, UNK
  8. SOLUMEDROL [Concomitant]
     Dosage: 125 MG, PER 8 HOURS
     Route: 042
  9. SOLUMEDROL [Concomitant]
     Dosage: 2 ML, PER 8 HOURS
     Route: 042
  10. ZOSYN [Concomitant]
     Dosage: 4.5 MG, UNK
  11. ZOSYN [Concomitant]
     Dosage: 100 ML, PER 8 HOURS
     Route: 042
  12. ZOSYN [Concomitant]
     Dosage: 25 ML/PER 8 HR
     Route: 042
  13. CLINDAMYCIN [Concomitant]
     Dosage: 900 MG, UNK
  14. CLINDAMYCIN [Concomitant]
     Dosage: 6 ML, PER 8 HR
     Route: 042
  15. CLINDAMYCIN [Concomitant]
     Dosage: 50 ML,PER 8 HRS
     Route: 042
  16. FENTANYL [Concomitant]
     Dosage: 2500 UG, UNK
     Route: 042
     Dates: end: 20120604
  17. MIDAZOLAM [Concomitant]
     Dosage: 100 MG, UNK
     Route: 042
     Dates: end: 20120604
  18. SODIUM CHLORIDE [Concomitant]
     Dosage: 0.9 %, 250ML
     Route: 042
     Dates: end: 20120604
  19. VANCOMYCIN [Concomitant]
     Dosage: 1500 MG, 250ML/HR
     Route: 042
     Dates: end: 20120604
  20. FLONASE [Concomitant]
     Dosage: UNK UKN, 2 SPRAY EACH NOSTRIL DAILY
  21. SCOPOLAMINE [Concomitant]
     Dosage: UNK UKN, 1.5 PATCH EVERY 72 HOURS
  22. KEPPRA [Concomitant]
     Dosage: 250 MG, BID
  23. OXYCODONE [Concomitant]
     Dosage: 40 MG,PER 8 HOURS
  24. LASIX [Concomitant]
     Dosage: 20 MG, DAILY
     Route: 048
  25. DEXAMETHASONE [Concomitant]
     Dosage: 4 MG, BID
  26. POLYETHYLENE GLYCOL [Concomitant]
     Dosage: 17 G, DAILY
     Route: 048

REACTIONS (20)
  - Streptococcal sepsis [Fatal]
  - Cellulitis [Fatal]
  - Pancytopenia [Fatal]
  - Metastases to liver [Fatal]
  - Metastases to bone [Fatal]
  - Metastases to central nervous system [Fatal]
  - Liver function test abnormal [Fatal]
  - Renal cancer [Unknown]
  - Haemolysis [Unknown]
  - Blood pressure decreased [Unknown]
  - Disease progression [Unknown]
  - Haemorrhage [Unknown]
  - Excoriation [Unknown]
  - Feeling hot [Unknown]
  - Disorientation [Unknown]
  - Pain [Unknown]
  - Depressed level of consciousness [Unknown]
  - Urticaria [Unknown]
  - Dizziness [Unknown]
  - Asthenia [Unknown]
